FAERS Safety Report 20483071 (Version 1)
Quarter: 2022Q1

REPORT INFORMATION
  Report Type: Spontaneous
  Country: US (occurrence: US)
  Receive Date: 20220217
  Receipt Date: 20220217
  Transmission Date: 20220423
  Serious: Yes (Other)
  Sender: FDA-Public Use
  Company Number: US-MLMSERVICE-20220201-3348507-1

PATIENT
  Age: 79 Year
  Sex: Male

DRUGS (8)
  1. FLUOROURACIL [Suspect]
     Active Substance: FLUOROURACIL
     Indication: Prostate cancer stage III
     Dosage: 16000 MILLIGRAM/SQ. METER (2 CYCLE) (1000 MG/M2/DAY ON DAYS 1?4 AND 29?32)
     Route: 065
  2. FLUOROURACIL [Suspect]
     Active Substance: FLUOROURACIL
     Indication: Anal squamous cell carcinoma
  3. MITOMYCIN [Suspect]
     Active Substance: MITOMYCIN
     Indication: Prostate cancer stage III
     Dosage: 40 MILLIGRAM/SQ. METER (10 MG/M2 ON DAYS 1 AND 29)
     Route: 065
  4. MITOMYCIN [Suspect]
     Active Substance: MITOMYCIN
     Indication: Anal squamous cell carcinoma
  5. BICALUTAMIDE [Concomitant]
     Active Substance: BICALUTAMIDE
     Indication: Anal squamous cell carcinoma
     Dosage: 50 MILLIGRAM, ONCE A DAY
     Route: 065
  6. BICALUTAMIDE [Concomitant]
     Active Substance: BICALUTAMIDE
     Indication: Prostate cancer stage III
  7. LEUPROLIDE ACETATE [Concomitant]
     Active Substance: LEUPROLIDE ACETATE
     Indication: Anal squamous cell carcinoma
     Dosage: 22.5 MILLIGRAM (EVERY THREE MONTHS)
     Route: 065
  8. LEUPROLIDE ACETATE [Concomitant]
     Active Substance: LEUPROLIDE ACETATE
     Indication: Prostate cancer stage III

REACTIONS (7)
  - Dehydration [Unknown]
  - Neutropenia [Unknown]
  - Toxicity to various agents [Unknown]
  - Diarrhoea [Unknown]
  - Fatigue [Unknown]
  - Pollakiuria [Unknown]
  - Weight decreased [Unknown]
